FAERS Safety Report 15424127 (Version 1)
Quarter: 2018Q3

REPORT INFORMATION
  Report Type: Report from Study
  Country: PK (occurrence: PK)
  Receive Date: 20180925
  Receipt Date: 20180925
  Transmission Date: 20181010
  Serious: Yes (Death)
  Sender: FDA-Public Use
  Company Number: PHHY2018PK100363

PATIENT
  Sex: Male
  Weight: 98 kg

DRUGS (1)
  1. AFINITOR [Suspect]
     Active Substance: EVEROLIMUS
     Indication: RENAL CELL CARCINOMA
     Dosage: 10 MG, QD
     Route: 048
     Dates: end: 20180110

REACTIONS (4)
  - Pain [Fatal]
  - Malignant neoplasm progression [Fatal]
  - Hepatic infection [Fatal]
  - Renal cell carcinoma [Fatal]
